FAERS Safety Report 9954075 (Version 2)
Quarter: 2014Q1

REPORT INFORMATION
  Report Type: Report from Study
  Country: PR (occurrence: PR)
  Receive Date: 20140304
  Receipt Date: 20140304
  Transmission Date: 20141002
  Serious: No
  Sender: FDA-Public Use
  Company Number: PR-ABBVIE-13P-163-1041527-00

PATIENT
  Age: 38 Year
  Sex: Male
  Weight: 72.64 kg

DRUGS (3)
  1. HUMIRA [Suspect]
     Indication: CROHN^S DISEASE
     Dates: start: 201203
  2. CLORAZEPATE [Concomitant]
     Indication: ANXIOLYTIC THERAPY
  3. ZANTAC [Concomitant]

REACTIONS (2)
  - Fatigue [Not Recovered/Not Resolved]
  - Ejaculation delayed [Not Recovered/Not Resolved]
